FAERS Safety Report 9948762 (Version 1)
Quarter: 2014Q1

REPORT INFORMATION
  Report Type: Report from Study
  Country: US (occurrence: US)
  Receive Date: 20140304
  Receipt Date: 20140304
  Transmission Date: 20141002
  Serious: Yes (Other)
  Sender: FDA-Public Use
  Company Number: US-ROCHE-1345066

PATIENT
  Sex: Female

DRUGS (8)
  1. LUCENTIS [Suspect]
     Indication: RETINITIS HISTOPLASMA
     Route: 050
  2. AVASTIN [Suspect]
     Indication: HISTOPLASMOSIS
     Route: 065
  3. POLYTRIM [Concomitant]
     Dosage: OS
     Route: 065
  4. MYDRIACYL [Concomitant]
     Route: 065
  5. LORATADINE [Concomitant]
  6. DETROL [Concomitant]
  7. METFORMIN [Concomitant]
     Route: 065
  8. LISINOPRIL [Concomitant]

REACTIONS (5)
  - Eye pruritus [Unknown]
  - Vision blurred [Unknown]
  - Visual acuity reduced [Unknown]
  - Retinal haemorrhage [Unknown]
  - Off label use [Unknown]
